FAERS Safety Report 6678035-8 (Version None)
Quarter: 2010Q2

REPORT INFORMATION
  Report Type: 
  Country: None (occurrence: None)
  Receive Date: 20100409
  Receipt Date: 20100409
  Transmission Date: 20101027
  Serious: Yes (Hospitalization)
  Sender: FDA-Public Use
  Company Number: None

PATIENT
  Age: 77 Year
  Sex: Male
  Weight: 110.6777 kg

DRUGS (1)
  1. PLAVIX [Suspect]
     Dates: start: 20100215, end: 20100329

REACTIONS (1)
  - ARTHRALGIA [None]
